FAERS Safety Report 12071064 (Version 2)
Quarter: 2016Q1

REPORT INFORMATION
  Report Type: Spontaneous
  Country: US (occurrence: US)
  Receive Date: 20160211
  Receipt Date: 20160310
  Transmission Date: 20160526
  Serious: No
  Sender: FDA-Public Use
  Company Number: US-CELGENEUS-USA-2016022335

PATIENT
  Age: 39 Year
  Sex: Female

DRUGS (11)
  1. OTEZLA [Suspect]
     Active Substance: APREMILAST
     Indication: RHEUMATOID ARTHRITIS
  2. PREDNISONE. [Concomitant]
     Active Substance: PREDNISONE
     Indication: PRODUCT USED FOR UNKNOWN INDICATION
     Route: 065
  3. ONDANSETRON [Concomitant]
     Active Substance: ONDANSETRON
     Indication: PRODUCT USED FOR UNKNOWN INDICATION
     Route: 065
  4. CYCLOBENZAPRINE [Concomitant]
     Active Substance: CYCLOBENZAPRINE
     Indication: PRODUCT USED FOR UNKNOWN INDICATION
     Route: 065
  5. NORCO [Concomitant]
     Active Substance: ACETAMINOPHEN\HYDROCODONE BITARTRATE
     Indication: PRODUCT USED FOR UNKNOWN INDICATION
     Dosage: 7.5/325MG
     Route: 065
  6. MOVANTIK [Concomitant]
     Active Substance: NALOXEGOL OXALATE
     Indication: PRODUCT USED FOR UNKNOWN INDICATION
     Dosage: 5 MILLIGRAM
     Route: 065
  7. PROAIR HFA [Concomitant]
     Active Substance: ALBUTEROL SULFATE
     Indication: PRODUCT USED FOR UNKNOWN INDICATION
     Route: 065
  8. OTEZLA [Suspect]
     Active Substance: APREMILAST
     Indication: PSORIASIS
     Dosage: 60 MILLIGRAM
     Route: 048
     Dates: start: 20151106, end: 20160308
  9. OMEPRAZOLE. [Concomitant]
     Active Substance: OMEPRAZOLE
     Indication: PRODUCT USED FOR UNKNOWN INDICATION
     Route: 065
  10. FLEXERIL [Concomitant]
     Active Substance: CYCLOBENZAPRINE HYDROCHLORIDE
     Indication: PRODUCT USED FOR UNKNOWN INDICATION
     Route: 065
  11. SIMPONI [Concomitant]
     Active Substance: GOLIMUMAB
     Indication: PRODUCT USED FOR UNKNOWN INDICATION
     Dosage: 50/0.5ML
     Route: 065

REACTIONS (4)
  - Headache [Unknown]
  - Throat irritation [Unknown]
  - Upper respiratory tract infection [Unknown]
  - Back pain [Unknown]

NARRATIVE: CASE EVENT DATE: 201511
